FAERS Safety Report 14415055 (Version 1)
Quarter: 2018Q1

REPORT INFORMATION
  Report Type: Spontaneous
  Country: US (occurrence: US)
  Receive Date: 20180118
  Receipt Date: 20180118
  Transmission Date: 20180509
  Serious: Yes (Life-Threatening, Hospitalization)
  Sender: FDA-Public Use
  Company Number: None

PATIENT
  Age: 77 Year
  Sex: Male
  Weight: 86.36 kg

DRUGS (1)
  1. GLOBULIN, IMMUNE [Suspect]
     Active Substance: HUMAN IMMUNOGLOBULIN G
     Indication: CHRONIC LYMPHOCYTIC LEUKAEMIA
     Dosage: FREQUENCY - OTHER
     Route: 042
     Dates: start: 20180117, end: 20180117

REACTIONS (4)
  - Chills [None]
  - Hypotension [None]
  - Bronchospasm [None]
  - Hypoxia [None]

NARRATIVE: CASE EVENT DATE: 20180117
